FAERS Safety Report 17110789 (Version 1)
Quarter: 2019Q4

REPORT INFORMATION
  Report Type: Spontaneous
  Country: US (occurrence: US)
  Receive Date: 20191204
  Receipt Date: 20191204
  Transmission Date: 20200122
  Serious: No
  Sender: FDA-Public Use
  Company Number: US-UNITED THERAPEUTICS-UNT-2019-019792

PATIENT
  Age: 57 Year
  Sex: Female
  Weight: 102.95 kg

DRUGS (3)
  1. LETAIRIS [Concomitant]
     Active Substance: AMBRISENTAN
     Indication: PRODUCT USED FOR UNKNOWN INDICATION
     Dosage: UNK
     Route: 065
  2. ADEMPAS [Concomitant]
     Active Substance: RIOCIGUAT
     Indication: PRODUCT USED FOR UNKNOWN INDICATION
     Dosage: UNK
     Route: 065
  3. REMODULIN [Suspect]
     Active Substance: TREPROSTINIL
     Indication: PULMONARY ARTERIAL HYPERTENSION
     Dosage: 0.02 ?G/KG, CONTINUING
     Route: 058
     Dates: start: 20190904

REACTIONS (5)
  - Dyspnoea [Unknown]
  - Infusion site pain [Unknown]
  - Chest pain [Unknown]
  - Infusion site swelling [Unknown]
  - Palpitations [Unknown]

NARRATIVE: CASE EVENT DATE: 201911
